FAERS Safety Report 9156608 (Version 2)
Quarter: 2013Q2

REPORT INFORMATION
  Report Type: Spontaneous
  Country: US (occurrence: None)
  Receive Date: 20130208
  Receipt Date: 20130628
  Transmission Date: 20140414
  Serious: Yes (Other)
  Sender: FDA-Public Use
  Company Number: ACO_33912_2012

PATIENT
  Age: 45 Year
  Sex: Female

DRUGS (2)
  1. AMPYRA (DALFAMPRIDINE) TABLET, 10MG [Suspect]
     Indication: PRODUCT USED FOR UNKNOWN INDICATION
     Dates: start: 201004, end: 201007
  2. WELLBUTRIN (BUPROPION HYDROCHLORIDE) [Suspect]
     Indication: DEPRESSION

REACTIONS (3)
  - Convulsion [None]
  - Urinary tract infection [None]
  - Drug ineffective [None]
